FAERS Safety Report 16264305 (Version 1)
Quarter: 2019Q2

REPORT INFORMATION
  Report Type: Spontaneous
  Country: US (occurrence: US)
  Receive Date: 20190327
  Receipt Date: 20190327
  Transmission Date: 20190711
  Serious: No
  Sender: FDA-Public Use
  Company Number: None

PATIENT
  Sex: Female

DRUGS (1)
  1. AJOVY [Suspect]
     Active Substance: FREMANEZUMAB-VFRM
     Indication: MIGRAINE
     Dosage: ?          OTHER STRENGTH:225/1.5 MG/M;?
     Route: 058
     Dates: start: 20190226, end: 20190315

REACTIONS (2)
  - Dyspnoea [None]
  - Hypersensitivity [None]
